FAERS Safety Report 5208658-4 (Version None)
Quarter: 2007Q1

REPORT INFORMATION
  Report Type: 
  Country: None (occurrence: None)
  Receive Date: 20070116
  Receipt Date: 20070103
  Transmission Date: 20070707
  Serious: Yes (Hospitalization)
  Sender: FDA-Public Use
  Company Number: PHBS2007BE00927

PATIENT
  Age: 79 Year
  Sex: Male

DRUGS (6)
  1. BACLOFEN [Suspect]
     Dosage: PROBABLY 5 MG/DAY
     Route: 048
  2. DILTIAZEM HCL [Concomitant]
  3. ASPIRIN [Concomitant]
  4. FUROSEMIDE [Concomitant]
  5. CANDESARTAN [Concomitant]
  6. DIALYSIS [Concomitant]

REACTIONS (19)
  - AMMONIA INCREASED [None]
  - BITE [None]
  - BLOOD CREATININE INCREASED [None]
  - BLOOD PH DECREASED [None]
  - BLOOD POTASSIUM INCREASED [None]
  - BLOOD PRESSURE INCREASED [None]
  - BLOOD UREA INCREASED [None]
  - BRADYPNOEA [None]
  - DEPRESSED LEVEL OF CONSCIOUSNESS [None]
  - DRUG LEVEL INCREASED [None]
  - ELECTROENCEPHALOGRAM ABNORMAL [None]
  - GLASGOW COMA SCALE ABNORMAL [None]
  - HEART RATE INCREASED [None]
  - HYPOTONIA [None]
  - INTUBATION [None]
  - LOSS OF CONSCIOUSNESS [None]
  - MIOSIS [None]
  - RESPIRATORY RATE INCREASED [None]
  - WRONG DRUG ADMINISTERED [None]
